FAERS Safety Report 6021253-2 (Version None)
Quarter: 2008Q4

REPORT INFORMATION
  Report Type: 
  Country: None (occurrence: None)
  Receive Date: 20081229
  Receipt Date: 20081126
  Transmission Date: 20090506
  Serious: No
  Sender: FDA-Public Use
  Company Number: US-BAYER-200814650BCC

PATIENT
  Age: 22 Year
  Sex: Female

DRUGS (2)
  1. ALEVE [Suspect]
     Indication: HEADACHE
     Dates: start: 20081125, end: 20081125
  2. ALEVE [Suspect]

REACTIONS (1)
  - ABDOMINAL DISCOMFORT [None]
